FAERS Safety Report 12821267 (Version 2)
Quarter: 2017Q3

REPORT INFORMATION
  Report Type: Report from Study
  Country: US (occurrence: US)
  Receive Date: 20161007
  Receipt Date: 20170809
  Transmission Date: 20171127
  Serious: Yes (Other)
  Sender: FDA-Public Use
  Company Number: US-ROCHE-1177088

PATIENT
  Age: 63 Year
  Sex: Male
  Weight: 72.5 kg

DRUGS (43)
  1. DOCETAXEL. [Suspect]
     Active Substance: DOCETAXEL
     Indication: PROSTATE CANCER
     Dosage: OVER 60 MINUTES ON DAY 1, LAST DOSE ON 29-OCT-2012, COURSE ID 1
     Route: 042
     Dates: start: 20120507
  2. LENALIDOMIDE [Suspect]
     Active Substance: LENALIDOMIDE
     Dosage: COURSE ID 6
     Route: 048
     Dates: start: 20120820
  3. PREDNISONE. [Suspect]
     Active Substance: PREDNISONE
     Dosage: COURSE ID 13
     Route: 048
     Dates: start: 20130122
  4. BEVACIZUMAB. [Suspect]
     Active Substance: BEVACIZUMAB
     Indication: PROSTATE CANCER
     Dosage: OVER 30-90 MINUTES ON DAY 1, LAST DOSE ON 29-OCT-2012, COURSE ID 1
     Route: 042
     Dates: start: 20120507
  5. DOCETAXEL. [Suspect]
     Active Substance: DOCETAXEL
     Dosage: COURSE ID 2
     Route: 042
     Dates: start: 20120529
  6. DOCETAXEL. [Suspect]
     Active Substance: DOCETAXEL
     Dosage: COURSE ID 3
     Route: 042
     Dates: start: 20120618
  7. DOCETAXEL. [Suspect]
     Active Substance: DOCETAXEL
     Dosage: COURSE ID 5
     Route: 042
     Dates: start: 20120730
  8. DOCETAXEL. [Suspect]
     Active Substance: DOCETAXEL
     Dosage: COURSE ID 11
     Route: 042
     Dates: start: 20121210
  9. PREDNISONE. [Suspect]
     Active Substance: PREDNISONE
     Dosage: COURSE ID 6
     Route: 048
     Dates: start: 20120820
  10. BEVACIZUMAB. [Suspect]
     Active Substance: BEVACIZUMAB
     Dosage: COURSE ID 7
     Route: 042
     Dates: start: 20120820
  11. DOCETAXEL. [Suspect]
     Active Substance: DOCETAXEL
     Dosage: COURSE ID 7
     Route: 042
     Dates: start: 20120910
  12. PREDNISONE. [Suspect]
     Active Substance: PREDNISONE
     Dosage: COURSE ID 7
     Route: 048
     Dates: start: 20120910
  13. PREDNISONE. [Suspect]
     Active Substance: PREDNISONE
     Dosage: COURSE ID 31
     Route: 048
     Dates: start: 20140218
  14. PREDNISONE. [Suspect]
     Active Substance: PREDNISONE
     Dosage: COURSE ID 26
     Route: 048
     Dates: start: 20131105
  15. DOCETAXEL. [Suspect]
     Active Substance: DOCETAXEL
     Dosage: COURSE ID 6
     Route: 042
     Dates: start: 20120820
  16. DOCETAXEL. [Suspect]
     Active Substance: DOCETAXEL
     Dosage: COURSE ID 53
     Route: 042
     Dates: start: 20150526
  17. LENALIDOMIDE [Suspect]
     Active Substance: LENALIDOMIDE
     Dosage: COURSE ID 7
     Route: 048
     Dates: start: 20120910
  18. LENALIDOMIDE [Suspect]
     Active Substance: LENALIDOMIDE
     Dosage: COURSE ID 8
     Route: 048
     Dates: start: 20121010
  19. PREDNISONE. [Suspect]
     Active Substance: PREDNISONE
     Dosage: COURSE ID 2
     Route: 048
     Dates: start: 20120529
  20. PREDNISONE. [Suspect]
     Active Substance: PREDNISONE
     Dosage: COURSE ID 14
     Route: 048
     Dates: start: 20130211
  21. BEVACIZUMAB. [Suspect]
     Active Substance: BEVACIZUMAB
     Dosage: COURSE ID 3
     Route: 042
     Dates: start: 20120618
  22. DOCETAXEL. [Suspect]
     Active Substance: DOCETAXEL
     Dosage: COURSE ID 9
     Route: 042
     Dates: start: 20121010
  23. DOCETAXEL. [Suspect]
     Active Substance: DOCETAXEL
     Dosage: COURSE ID 14
     Route: 042
     Dates: start: 20130211
  24. LENALIDOMIDE [Suspect]
     Active Substance: LENALIDOMIDE
     Dosage: COURSE ID 9
     Route: 048
     Dates: start: 20121010
  25. PREDNISONE. [Suspect]
     Active Substance: PREDNISONE
     Indication: PROSTATE CANCER
     Dosage: LAST DOSE ON 19-NOV-2012, COURSE ID 1
     Route: 048
     Dates: start: 20120507
  26. PREDNISONE. [Suspect]
     Active Substance: PREDNISONE
     Dosage: COURSE ID 3
     Route: 048
     Dates: start: 20120618
  27. PREDNISONE. [Suspect]
     Active Substance: PREDNISONE
     Dosage: COURSE ID 8
     Route: 048
     Dates: start: 20121010
  28. BEVACIZUMAB. [Suspect]
     Active Substance: BEVACIZUMAB
     Dosage: COURSE ID 2
     Route: 042
     Dates: start: 20120529
  29. BEVACIZUMAB. [Suspect]
     Active Substance: BEVACIZUMAB
     Dosage: COURSE ID 5
     Route: 042
     Dates: start: 20120529
  30. DOCETAXEL. [Suspect]
     Active Substance: DOCETAXEL
     Dosage: COURSE ID 8
     Route: 042
     Dates: start: 20121010
  31. LENALIDOMIDE [Suspect]
     Active Substance: LENALIDOMIDE
     Indication: PROSTATE CANCER
     Dosage: ON DAYS 1-14, LAST DOSE ON 31-OCT-2012, COURSE ID 1
     Route: 048
     Dates: start: 20120507
  32. LENALIDOMIDE [Suspect]
     Active Substance: LENALIDOMIDE
     Dosage: COURSE ID 5
     Route: 048
     Dates: start: 20120730
  33. PREDNISONE. [Suspect]
     Active Substance: PREDNISONE
     Dosage: COURSE ID 5
     Route: 048
     Dates: start: 20120730
  34. PREDNISONE. [Suspect]
     Active Substance: PREDNISONE
     Dosage: COURSE ID 22
     Route: 048
     Dates: start: 20130805
  35. PREDNISONE. [Suspect]
     Active Substance: PREDNISONE
     Dosage: COURSE ID 42
     Route: 048
     Dates: start: 20141007
  36. PREDNISONE. [Suspect]
     Active Substance: PREDNISONE
     Dosage: COURSE ID 47
     Route: 048
     Dates: start: 20150121
  37. BEVACIZUMAB. [Suspect]
     Active Substance: BEVACIZUMAB
     Dosage: COURSE ID 9
     Route: 042
     Dates: start: 20120820
  38. LENALIDOMIDE [Suspect]
     Active Substance: LENALIDOMIDE
     Dosage: COURSE ID 2
     Route: 048
     Dates: start: 20120529
  39. PREDNISONE. [Suspect]
     Active Substance: PREDNISONE
     Dosage: COURSE ID 9
     Route: 048
     Dates: start: 20121029
  40. PREDNISONE. [Suspect]
     Active Substance: PREDNISONE
     Dosage: COURSE ID 53
     Route: 048
     Dates: start: 20150526
  41. BEVACIZUMAB. [Suspect]
     Active Substance: BEVACIZUMAB
     Dosage: COURSE ID 6
     Route: 042
     Dates: start: 20120820
  42. LENALIDOMIDE [Suspect]
     Active Substance: LENALIDOMIDE
     Dosage: COURSE ID 3
     Route: 048
     Dates: start: 20120618
  43. PREDNISONE. [Suspect]
     Active Substance: PREDNISONE
     Dosage: COURSE ID 11
     Route: 048
     Dates: start: 20121210

REACTIONS (2)
  - Transient ischaemic attack [Recovered/Resolved]
  - Hypophosphataemia [Unknown]

NARRATIVE: CASE EVENT DATE: 20121031
